FAERS Safety Report 15290804 (Version 3)
Quarter: 2021Q1

REPORT INFORMATION
  Report Type: Report from Study
  Country: NL (occurrence: NL)
  Receive Date: 20180817
  Receipt Date: 20210211
  Transmission Date: 20210419
  Serious: Yes (Other)
  Sender: FDA-Public Use
  Company Number: NL-PFIZER INC-2018308212

PATIENT
  Age: 56 Year
  Sex: Male

DRUGS (4)
  1. SIROLIMUS. [Suspect]
     Active Substance: SIROLIMUS
     Indication: ADENOMATOUS POLYPOSIS COLI
     Dosage: 2 MG, 1X/DAY
     Route: 048
     Dates: start: 20171109, end: 20171117
  2. SIROLIMUS. [Suspect]
     Active Substance: SIROLIMUS
     Dosage: 3 MG, 1X/DAY
     Route: 048
     Dates: start: 20171117, end: 20171124
  3. SIROLIMUS. [Suspect]
     Active Substance: SIROLIMUS
     Dosage: 4 MG, 1X/DAY
     Route: 048
     Dates: start: 20171124, end: 20180213
  4. SIROLIMUS. [Suspect]
     Active Substance: SIROLIMUS
     Dosage: 3 MG, 1X/DAY
     Route: 048
     Dates: start: 20180213, end: 20180502

REACTIONS (1)
  - Desmoid tumour [Not Recovered/Not Resolved]

NARRATIVE: CASE EVENT DATE: 20171127
